FAERS Safety Report 7018913-3 (Version None)
Quarter: 2010Q3

REPORT INFORMATION
  Report Type: 
  Country: None (occurrence: None)
  Receive Date: 20100928
  Receipt Date: 20100922
  Transmission Date: 20110219
  Serious: Yes (Death)
  Sender: FDA-Public Use
  Company Number: US-GILEAD-2010-0032063

PATIENT
  Sex: Female

DRUGS (10)
  1. LETAIRIS [Suspect]
     Indication: PULMONARY ARTERIAL HYPERTENSION
     Route: 048
     Dates: start: 20100615
  2. COUMADIN [Concomitant]
  3. LASIX [Concomitant]
  4. ALTACE [Concomitant]
  5. FENTANYL CITRATE [Concomitant]
  6. OXYCONTIN [Concomitant]
  7. PERCOCET [Concomitant]
  8. ALPRAZOLAM [Concomitant]
  9. POTASSIUM [Concomitant]
  10. AMITRIPTYLINE [Concomitant]

REACTIONS (1)
  - DEATH [None]
